FAERS Safety Report 6581182-2 (Version None)
Quarter: 2010Q1

REPORT INFORMATION
  Report Type: 
  Country: None (occurrence: None)
  Receive Date: 20100215
  Receipt Date: 20100204
  Transmission Date: 20100710
  Serious: Yes (Other)
  Sender: FDA-Public Use
  Company Number: CA-ASTRAZENECA-2010SE05590

PATIENT
  Age: 76 Year
  Sex: Male

DRUGS (8)
  1. PULMICORT [Suspect]
     Route: 055
  2. METOPROLOL TARTRATE [Concomitant]
     Route: 048
  3. APO-SALVENT [Concomitant]
     Dosage: 2 PUFF AS NEED
     Route: 055
  4. ATROVENT [Concomitant]
     Dosage: 2 PUFF QID
     Route: 055
  5. FUROSEMID [Concomitant]
     Route: 048
  6. CADUET [Concomitant]
     Dosage: 10/20 DAILY
     Route: 048
  7. COZAAR [Concomitant]
     Route: 048
  8. SPIRONOLACTONE [Concomitant]
     Route: 048

REACTIONS (2)
  - DRUG INEFFECTIVE [None]
  - DYSPNOEA [None]
